FAERS Safety Report 7719081-2 (Version None)
Quarter: 2011Q3

REPORT INFORMATION
  Report Type: 
  Country: None (occurrence: None)
  Receive Date: 20110830
  Receipt Date: 20110822
  Transmission Date: 20111222
  Serious: Yes (Other)
  Sender: FDA-Public Use
  Company Number: CH-JNJFOC-20110712100

PATIENT
  Sex: Male
  Weight: 90 kg

DRUGS (2)
  1. XARELTO [Suspect]
     Indication: THROMBOSIS PROPHYLAXIS
     Route: 048
     Dates: start: 20110513, end: 20110612
  2. XARELTO [Suspect]
     Route: 048

REACTIONS (1)
  - POLYNEUROPATHY [None]
